FAERS Safety Report 4933292-0 (Version None)
Quarter: 2006Q1

REPORT INFORMATION
  Report Type: 
  Country: None (occurrence: None)
  Receive Date: 20060306
  Receipt Date: 20060224
  Transmission Date: 20060701
  Serious: Yes (Other)
  Sender: FDA-Public Use
  Company Number: GB-MERCK-0602GBR00142

PATIENT
  Age: 40 Year
  Sex: Male

DRUGS (2)
  1. ZETIA [Suspect]
     Route: 048
  2. SIMVASTATIN [Concomitant]
     Route: 065

REACTIONS (1)
  - HEPATIC ENZYME INCREASED [None]
